FAERS Safety Report 13455852 (Version 1)
Quarter: 2017Q2

REPORT INFORMATION
  Report Type: Spontaneous
  Country: US (occurrence: US)
  Receive Date: 20170418
  Receipt Date: 20170418
  Transmission Date: 20170830
  Serious: No
  Sender: FDA-Public Use
  Company Number: None

PATIENT
  Age: 6 Year
  Sex: Male
  Weight: 26.1 kg

DRUGS (3)
  1. OSELTAMIVIR PHOSPHATE CAPSULES [Suspect]
     Active Substance: OSELTAMIVIR PHOSPHATE
     Indication: INFLUENZA
     Dosage: ?          QUANTITY:2 CAPSULE(S);?
     Route: 048
     Dates: start: 20170412, end: 20170416
  2. PROBIOTIC [Concomitant]
     Active Substance: PROBIOTICS NOS
  3. GENERIC FLONASE [Concomitant]

REACTIONS (3)
  - Memory impairment [None]
  - Sleep terror [None]
  - Hallucination [None]

NARRATIVE: CASE EVENT DATE: 20170416
